FAERS Safety Report 23947900 (Version 3)
Quarter: 2024Q2

REPORT INFORMATION
  Report Type: Report from Study
  Country: US (occurrence: US)
  Receive Date: 20240606
  Receipt Date: 20240621
  Transmission Date: 20240716
  Serious: Yes (Hospitalization)
  Sender: FDA-Public Use
  Company Number: US-BIOGEN-2024BI01267981

PATIENT
  Sex: Male

DRUGS (1)
  1. TYSABRI [Suspect]
     Active Substance: NATALIZUMAB
     Indication: Multiple sclerosis
     Route: 050
     Dates: start: 20130405

REACTIONS (5)
  - Respiratory failure [Unknown]
  - Pulmonary thrombosis [Unknown]
  - Nutritional condition abnormal [Unknown]
  - Dysstasia [Unknown]
  - Pneumonia [Unknown]
